FAERS Safety Report 15764484 (Version 1)
Quarter: 2018Q4

REPORT INFORMATION
  Report Type: Spontaneous
  Country: IN (occurrence: IN)
  Receive Date: 20181226
  Receipt Date: 20181226
  Transmission Date: 20190205
  Serious: No
  Sender: FDA-Public Use
  Company Number: None

PATIENT
  Age: 39 Year
  Sex: Male
  Weight: 82 kg

DRUGS (1)
  1. OSELTAMIVIR PHOSPHATE CAPSULES [Suspect]
     Active Substance: OSELTAMIVIR PHOSPHATE
     Indication: INFLUENZA
     Dosage: ?          QUANTITY:10 CAPSULE(S);?
     Route: 048
     Dates: start: 20181221, end: 20181224

REACTIONS (4)
  - Confusional state [None]
  - Disorientation [None]
  - Delirium [None]
  - Vertigo [None]

NARRATIVE: CASE EVENT DATE: 20181224
